FAERS Safety Report 7344544-1 (Version None)
Quarter: 2011Q1

REPORT INFORMATION
  Report Type: 
  Country: None (occurrence: None)
  Receive Date: 20110308
  Receipt Date: 20110308
  Transmission Date: 20110831
  Serious: Yes (Life-Threatening)
  Sender: FDA-Public Use
  Company Number: None

PATIENT
  Age: 58 Year
  Sex: Female
  Weight: 58.9676 kg

DRUGS (1)
  1. REMERON [Suspect]
     Indication: INSOMNIA
     Dosage: 30 MG. 1 PER DAY- PO
     Route: 048
     Dates: start: 20110121, end: 20110128

REACTIONS (7)
  - ABNORMAL BEHAVIOUR [None]
  - RESTLESS LEGS SYNDROME [None]
  - AMNESIA [None]
  - PARAESTHESIA [None]
  - COMMUNICATION DISORDER [None]
  - CONFUSIONAL STATE [None]
  - THINKING ABNORMAL [None]
